FAERS Safety Report 13192035 (Version 1)
Quarter: 2017Q1

REPORT INFORMATION
  Report Type: Spontaneous
  Country: US (occurrence: US)
  Receive Date: 20170206
  Receipt Date: 20170206
  Transmission Date: 20170428
  Serious: Yes (Hospitalization)
  Sender: FDA-Public Use
  Company Number: None

PATIENT
  Age: 64 Year
  Sex: Female
  Weight: 81.72 kg

DRUGS (3)
  1. WARFARIN [Suspect]
     Active Substance: WARFARIN
  2. HEPARIN [Suspect]
     Active Substance: HEPARIN SODIUM
     Indication: RETINAL VASCULAR THROMBOSIS
     Dosage: 5000/MI SHOTS OTH 15 INJ DAILY INJECTION
  3. PLAVIX [Suspect]
     Active Substance: CLOPIDOGREL BISULFATE

REACTIONS (5)
  - Cerebrovascular accident [None]
  - Ulcer haemorrhage [None]
  - Rectal haemorrhage [None]
  - Vaginal haemorrhage [None]
  - Gastric haemorrhage [None]

NARRATIVE: CASE EVENT DATE: 20150102
